FAERS Safety Report 5350624-2 (Version None)
Quarter: 2007Q2

REPORT INFORMATION
  Report Type: 
  Country: None (occurrence: None)
  Receive Date: 20070608
  Receipt Date: 20070605
  Transmission Date: 20071010
  Serious: Yes (Death)
  Sender: FDA-Public Use
  Company Number: AU-ROCHE-500602

PATIENT
  Age: 45 Year
  Sex: Female

DRUGS (2)
  1. RIVOTRIL [Suspect]
     Indication: PAIN
     Dosage: INDICATIONS: CHRONIC PAIN, TREMORS, AND RESTLESS LEG SYNDROME. LONG TERM.
     Route: 048
     Dates: start: 20020101, end: 20060401
  2. RIVOTRIL [Suspect]
     Dosage: MONITORED WITHDRAWAL FROM RIVOTRIL IN THE AMOUNT OF 1/4 OF TABLET FORTNIGHTLY.
     Route: 048
     Dates: start: 20060401

REACTIONS (14)
  - AMNESIA [None]
  - ANOREXIA [None]
  - ANXIETY [None]
  - COMPLETED SUICIDE [None]
  - CRYING [None]
  - DRUG WITHDRAWAL SYNDROME [None]
  - EYE PAIN [None]
  - FATIGUE [None]
  - HEADACHE [None]
  - MYALGIA [None]
  - NAUSEA [None]
  - PAIN [None]
  - SUICIDAL IDEATION [None]
  - WEIGHT DECREASED [None]
